FAERS Safety Report 23152292 (Version 1)
Quarter: 2023Q4

REPORT INFORMATION
  Report Type: Spontaneous
  Country: FR (occurrence: FR)
  Receive Date: 20231107
  Receipt Date: 20231107
  Transmission Date: 20240109
  Serious: Yes (Other)
  Sender: FDA-Public Use
  Company Number: None

PATIENT
  Age: 75 Year
  Sex: Female

DRUGS (9)
  1. AMOXICILLIN SODIUM [Suspect]
     Active Substance: AMOXICILLIN SODIUM
     Indication: Pneumonia
     Dates: start: 20220910, end: 20220915
  2. AMOXICILLIN\CLAVULANIC ACID [Suspect]
     Active Substance: AMOXICILLIN\CLAVULANIC ACID
     Indication: Pneumonia
     Dates: start: 20220916, end: 20220920
  3. NICORANDIL [Concomitant]
     Active Substance: NICORANDIL
     Indication: Myocardial ischaemia
     Dates: start: 202110
  4. ACETAMINOPHEN\OPIUM [Concomitant]
     Active Substance: ACETAMINOPHEN\OPIUM
     Indication: Pain
     Dates: start: 202110
  5. LEVOTHYROXINE [Concomitant]
     Active Substance: LEVOTHYROXINE
     Indication: Hypothyroidism
     Dates: start: 202110
  6. FUROSEMIDE [Concomitant]
     Active Substance: FUROSEMIDE
     Indication: Myocardial ischaemia
     Dates: start: 202110
  7. ROSUVASTATIN [Concomitant]
     Active Substance: ROSUVASTATIN
     Indication: Dyslipidaemia
     Dates: start: 202110
  8. COVERAM [Concomitant]
     Active Substance: AMLODIPINE\PERINDOPRIL
     Indication: Myocardial ischaemia
     Dates: start: 202206
  9. SPIRIVA [Concomitant]
     Active Substance: TIOTROPIUM BROMIDE MONOHYDRATE
     Indication: Chronic obstructive pulmonary disease
     Dates: start: 20220920

REACTIONS (1)
  - Cholestatic liver injury [Recovering/Resolving]

NARRATIVE: CASE EVENT DATE: 20220919
